FAERS Safety Report 7843420-5 (Version None)
Quarter: 2011Q4

REPORT INFORMATION
  Report Type: 
  Country: None (occurrence: None)
  Receive Date: 20111020
  Receipt Date: 20111013
  Transmission Date: 20120403
  Serious: Yes (Other)
  Sender: FDA-Public Use
  Company Number: 2010SP023458

PATIENT
  Age: 54 Year
  Sex: Female
  Weight: 57 kg

DRUGS (4)
  1. CERAZETTE (DESOGESTREL /00754001/) [Suspect]
     Indication: UTERINE LEIOMYOMA
     Dosage: PO
     Route: 048
     Dates: start: 20070317, end: 20110317
  2. CERAZETTE (DESOGESTREL /00754001/) [Suspect]
     Indication: CONTRACEPTION
     Dosage: PO
     Route: 048
     Dates: start: 20070317, end: 20110317
  3. CERAZETTE (DESOGESTREL /00754001/) [Suspect]
     Indication: UTERINE LEIOMYOMA
     Dosage: PO
     Route: 048
     Dates: start: 20110101
  4. CERAZETTE (DESOGESTREL /00754001/) [Suspect]
     Indication: CONTRACEPTION
     Dosage: PO
     Route: 048
     Dates: start: 20110101

REACTIONS (1)
  - INAPPROPRIATE SCHEDULE OF DRUG ADMINISTRATION [None]
